FAERS Safety Report 21082871 (Version 1)
Quarter: 2022Q3

REPORT INFORMATION
  Report Type: Report from Study
  Country: US (occurrence: US)
  Receive Date: 20220714
  Receipt Date: 20220714
  Transmission Date: 20221026
  Serious: Yes (Other)
  Sender: FDA-Public Use
  Company Number: US-BIOVITRUM-2022US05025

PATIENT
  Age: 36 Year
  Sex: Male

DRUGS (9)
  1. KINERET [Suspect]
     Active Substance: ANAKINRA
     Indication: Pericardial disease
     Dates: start: 20220324
  2. KINERET [Suspect]
     Active Substance: ANAKINRA
     Indication: Chest pain
     Dates: start: 20220415
  3. KINERET [Suspect]
     Active Substance: ANAKINRA
     Indication: COVID-19
     Dates: end: 20220503
  4. KINERET [Suspect]
     Active Substance: ANAKINRA
     Dates: start: 20220321
  5. PRAVASTATIN [Concomitant]
     Active Substance: PRAVASTATIN
  6. COLCHICINE [Concomitant]
     Active Substance: COLCHICINE
  7. PREDNISONE [Concomitant]
     Active Substance: PREDNISONE
  8. HUMAN IMMUNOGLOBULIN G [Concomitant]
     Active Substance: HUMAN IMMUNOGLOBULIN G
  9. IVABRADINE [Concomitant]
     Active Substance: IVABRADINE

REACTIONS (9)
  - Neutropenia [Unknown]
  - Chest pain [Unknown]
  - Malaise [Unknown]
  - Injection site discomfort [Unknown]
  - Injection site haemorrhage [Unknown]
  - Neutrophil count decreased [Unknown]
  - Hepatic enzyme increased [Unknown]
  - Injection site rash [Unknown]
  - Off label use [Not Recovered/Not Resolved]

NARRATIVE: CASE EVENT DATE: 20220324
